FAERS Safety Report 7873170-0 (Version None)
Quarter: 2011Q4

REPORT INFORMATION
  Report Type: 
  Country: None (occurrence: None)
  Receive Date: 20111030
  Receipt Date: 20110425
  Transmission Date: 20120403
  Serious: No
  Sender: FDA-Public Use
  Company Number: US-AMGEN-USASP2011021417

PATIENT
  Age: 49 Year
  Sex: Female
  Weight: 53.515 kg

DRUGS (5)
  1. ENBREL [Suspect]
     Indication: PRODUCT USED FOR UNKNOWN INDICATION
     Dosage: 50 MG, QWK
     Route: 058
  2. LORAZEPAM [Concomitant]
     Dosage: 1 MG, UNK
  3. NEXIUM [Concomitant]
     Dosage: 40 MG, UNK
  4. METHOTREXATE                       /00113801/ [Concomitant]
     Dosage: 2.5 MG, UNK
  5. FOLIC ACID [Concomitant]
     Dosage: 1 MG, UNK

REACTIONS (1)
  - ANXIETY [None]
